FAERS Safety Report 5222485-3 (Version None)
Quarter: 2007Q1

REPORT INFORMATION
  Report Type: 
  Country: None (occurrence: None)
  Receive Date: 20070129
  Receipt Date: 20060719
  Transmission Date: 20070707
  Serious: Yes (Hospitalization)
  Sender: FDA-Public Use
  Company Number: US-BRISTOL-MYERS SQUIBB COMPANY-13447701

PATIENT
  Age: 55 Year
  Sex: Female
  Weight: 72 kg

DRUGS (3)
  1. CARDIOLITE [Suspect]
     Indication: CHEST PAIN
     Dates: start: 20060718, end: 20060719
  2. CARDIOLITE [Suspect]
     Indication: FAMILIAL RISK FACTOR
     Dates: start: 20060718, end: 20060719
  3. LIPITOR [Concomitant]

REACTIONS (4)
  - DYSGEUSIA [None]
  - LIP SWELLING [None]
  - OEDEMA MOUTH [None]
  - ORAL PRURITUS [None]
